FAERS Safety Report 7710185-7 (Version None)
Quarter: 2011Q3

REPORT INFORMATION
  Report Type: 
  Country: None (occurrence: None)
  Receive Date: 20110825
  Receipt Date: 20110606
  Transmission Date: 20111222
  Serious: Yes (Other)
  Sender: FDA-Public Use
  Company Number: US-MYLANLABS-2011S1007414

PATIENT
  Age: 70 Year
  Sex: Male

DRUGS (10)
  1. DILANTIN [Concomitant]
     Dates: start: 19910101
  2. LEVETIRACETAM [Suspect]
     Indication: CONVULSION
     Route: 048
     Dates: start: 20110101, end: 20110501
  3. LEVETIRACETAM [Suspect]
     Route: 048
     Dates: start: 20110501, end: 20110603
  4. ASPIRIN [Concomitant]
  5. LIPITOR [Concomitant]
  6. DILANTIN [Concomitant]
     Dates: start: 19910101
  7. KLONOPIN [Concomitant]
  8. AVAPRO [Concomitant]
  9. MULTI-VITAMIN [Concomitant]
  10. LEVETIRACETAM [Suspect]
     Route: 048
     Dates: start: 20110603

REACTIONS (2)
  - DRUG INEFFECTIVE [None]
  - CONVULSION [None]
